FAERS Safety Report 11520680 (Version 2)
Quarter: 2015Q4

REPORT INFORMATION
  Report Type: Spontaneous
  Country: CH (occurrence: CH)
  Receive Date: 20150918
  Receipt Date: 20151012
  Transmission Date: 20160304
  Serious: Yes (Hospitalization)
  Sender: FDA-Public Use
  Company Number: CH-TEVA-592918ISR

PATIENT
  Age: 33 Year
  Sex: Male

DRUGS (6)
  1. TENOFOVIR [Concomitant]
     Active Substance: TENOFOVIR
     Indication: ANTIRETROVIRAL THERAPY
     Route: 065
  2. DARUNAVIR [Concomitant]
     Active Substance: DARUNAVIR
     Indication: ANTIRETROVIRAL THERAPY
     Route: 065
  3. EMTRICITABINE [Concomitant]
     Active Substance: EMTRICITABINE
     Indication: ANTIRETROVIRAL THERAPY
     Route: 065
  4. RITONAVIR. [Suspect]
     Active Substance: RITONAVIR
     Indication: ANTIRETROVIRAL THERAPY
     Route: 065
  5. ERGOTAMINE TARTRATE [Suspect]
     Active Substance: ERGOTAMINE TARTRATE
     Indication: HEADACHE
     Route: 065
  6. IBUPROFEN. [Suspect]
     Active Substance: IBUPROFEN
     Indication: VIRAL UPPER RESPIRATORY TRACT INFECTION
     Route: 065

REACTIONS (11)
  - Pain in extremity [Unknown]
  - Paraesthesia [Unknown]
  - Arterial spasm [Recovering/Resolving]
  - Drug screen false positive [Recovered/Resolved]
  - Peripheral swelling [Unknown]
  - Toxicity to various agents [Recovering/Resolving]
  - Blood pressure immeasurable [Recovering/Resolving]
  - Pulse absent [Recovering/Resolving]
  - Renal impairment [Recovering/Resolving]
  - Accidental overdose [Recovering/Resolving]
  - Pallor [Unknown]
